FAERS Safety Report 20662635 (Version 3)
Quarter: 2022Q2

REPORT INFORMATION
  Report Type: Spontaneous
  Country: US (occurrence: US)
  Receive Date: 20220401
  Receipt Date: 20220411
  Transmission Date: 20220721
  Serious: Yes (Hospitalization, Other)
  Sender: FDA-Public Use
  Company Number: US-UNITED THERAPEUTICS-UNT-2022-007004

PATIENT
  Age: 58 Year
  Sex: Female

DRUGS (9)
  1. TYVASO [Suspect]
     Active Substance: TREPROSTINIL
     Indication: Pulmonary arterial hypertension
     Dosage: UNK
     Dates: start: 20210707
  2. TYVASO [Suspect]
     Active Substance: TREPROSTINIL
     Indication: Systemic scleroderma
     Dosage: 18 ?G, QID
  3. TYVASO [Suspect]
     Active Substance: TREPROSTINIL
     Dosage: 12 ?G, QID
  4. TYVASO [Suspect]
     Active Substance: TREPROSTINIL
     Dosage: 24 ?G, QID
  5. TYVASO [Suspect]
     Active Substance: TREPROSTINIL
     Dosage: 54 ?G, QID
  6. OFEV [Suspect]
     Active Substance: NINTEDANIB
     Indication: Pulmonary arterial hypertension
     Dosage: 100 MG, Q12H
     Route: 048
     Dates: start: 20191118
  7. OFEV [Suspect]
     Active Substance: NINTEDANIB
     Indication: Systemic scleroderma
  8. MACITENTAN [Concomitant]
     Active Substance: MACITENTAN
     Indication: Pulmonary arterial hypertension
     Dosage: 10 MG, QD
     Route: 048
     Dates: start: 202106
  9. MACITENTAN [Concomitant]
     Active Substance: MACITENTAN
     Indication: Systemic scleroderma

REACTIONS (10)
  - Dyspnoea exertional [Unknown]
  - Palpitations [Unknown]
  - Dizziness [Unknown]
  - Interstitial lung disease [Unknown]
  - Pulmonary hypertension [Unknown]
  - Systemic scleroderma [Unknown]
  - Nausea [Recovering/Resolving]
  - Diarrhoea [Recovering/Resolving]
  - Headache [Recovering/Resolving]
  - Off label use [Unknown]

NARRATIVE: CASE EVENT DATE: 20210707
